FAERS Safety Report 6819102-5 (Version None)
Quarter: 2010Q3

REPORT INFORMATION
  Report Type: 
  Country: None (occurrence: None)
  Receive Date: 20100707
  Receipt Date: 20100628
  Transmission Date: 20110219
  Serious: Yes (Hospitalization, Other)
  Sender: FDA-Public Use
  Company Number: US-JNJFOC-20090504752

PATIENT
  Sex: Female
  Weight: 86.18 kg

DRUGS (1)
  1. ORTHO EVRA [Suspect]
     Indication: CONTRACEPTION
     Route: 062

REACTIONS (7)
  - DEEP VEIN THROMBOSIS [None]
  - DRUG EXPOSURE DURING PREGNANCY [None]
  - MEDIASTINAL MASS [None]
  - MEDICATION ERROR [None]
  - PREGNANCY WITH CONTRACEPTIVE PATCH [None]
  - THROMBOSIS [None]
  - THYROID NEOPLASM [None]
